FAERS Safety Report 9905591 (Version 1)
Quarter: 2013Q2

REPORT INFORMATION
  Report Type: Spontaneous
  Country: US (occurrence: None)
  Receive Date: 20130305
  Receipt Date: 20130305
  Transmission Date: 20140414
  Serious: No
  Sender: FDA-Public Use
  Company Number: 1000040770

PATIENT
  Age: 78 Year
  Sex: Female

DRUGS (6)
  1. DALIRESP (ROFLUMILAST) (500 MICROGRAM, TABLETS) [Suspect]
     Indication: CHRONIC OBSTRUCTIVE PULMONARY DISEASE
     Dosage: 500 MCG (500 MCG, 1 IN 1 D), ORAL
     Route: 048
     Dates: start: 201211
  2. BROVANA (ARFORMOTEROL TARTRATE) (ARFORMOTEROL TARTRATE) [Concomitant]
  3. OXYGEN (OXYGEN) (OXYGEN) [Concomitant]
  4. KLONOPIN (CLONAZEPAM) (CLONAZEPAM) [Concomitant]
  5. ATENOLOL (ATENOLOL) (ATENOLOL) [Concomitant]
  6. PROMIDONE (PRIMIDONE) (PRIMIDONE) [Concomitant]

REACTIONS (3)
  - Pain [None]
  - Chest pain [None]
  - Diarrhoea [None]
